FAERS Safety Report 8582379-2 (Version None)
Quarter: 2012Q3

REPORT INFORMATION
  Report Type: 
  Country: None (occurrence: None)
  Receive Date: 20120809
  Receipt Date: 20120730
  Transmission Date: 20120928
  Serious: Yes (Hospitalization)
  Sender: FDA-Public Use
  Company Number: US-GLAXOSMITHKLINE-A0899134A

PATIENT
  Age: 62 Year
  Sex: Female
  Weight: 109.1 kg

DRUGS (9)
  1. GABAPENTIN [Concomitant]
  2. CYMBALTA [Concomitant]
  3. INSULIN [Concomitant]
  4. METFORMIN HYDROCHLORIDE [Concomitant]
  5. SYNTHROID [Concomitant]
  6. IMITREX [Concomitant]
  7. REQUIP [Concomitant]
  8. AVANDIA [Suspect]
     Indication: DIABETES MELLITUS
     Dosage: 4MG PER DAY
     Route: 048
     Dates: start: 20050101, end: 20050601
  9. VALIUM [Concomitant]

REACTIONS (3)
  - MYOCARDIAL INFARCTION [None]
  - CARDIAC FAILURE CONGESTIVE [None]
  - CEREBROVASCULAR ACCIDENT [None]
